FAERS Safety Report 23701942 (Version 15)
Quarter: 2024Q3

REPORT INFORMATION
  Report Type: Spontaneous
  Country: GB (occurrence: GB)
  Receive Date: 20240403
  Receipt Date: 20240829
  Transmission Date: 20241017
  Serious: Yes (Hospitalization)
  Sender: PFIZER
  Company Number: GB-PFM-2024-01976

PATIENT
  Age: 9 Year
  Sex: Female
  Weight: 26.9 kg

DRUGS (6)
  1. BINIMETINIB [Suspect]
     Active Substance: BINIMETINIB
     Indication: Optic pathway injury
     Dosage: 30 MG, BID (2/DAY), GASTROENTERAL USE ROUTE
     Dates: start: 20240306, end: 20240509
  2. BINIMETINIB [Suspect]
     Active Substance: BINIMETINIB
     Dosage: UNK
     Route: 065
     Dates: start: 20240524, end: 2024
  3. BEVACIZUMAB [Concomitant]
     Active Substance: BEVACIZUMAB
     Indication: Optic glioma
     Dosage: UNK
     Route: 065
     Dates: start: 20240302
  4. COTRIMOXAZOLE [Concomitant]
     Active Substance: SULFAMETHOXAZOLE\TRIMETHOPRIM
     Indication: Prophylaxis
     Dosage: UNK
     Route: 048
     Dates: start: 201810
  5. MOVICOL [Concomitant]
     Active Substance: POLYETHYLENE GLYCOL 3350\POTASSIUM CHLORIDE\SODIUM BICARBONATE\SODIUM CHLORIDE
     Indication: Constipation
     Dosage: UNK, SACHET
     Route: 048
     Dates: start: 201807
  6. CLOTRIMAZOLE [Concomitant]
     Active Substance: CLOTRIMAZOLE
     Indication: Fungal infection
     Dosage: UNK
     Route: 061
     Dates: start: 20240328

REACTIONS (18)
  - Pyrexia [Recovered/Resolved]
  - Pyrexia [Recovered/Resolved]
  - Diarrhoea [Recovered/Resolved]
  - Pain [Recovered/Resolved with Sequelae]
  - Fall [Recovered/Resolved with Sequelae]
  - Vomiting [Recovered/Resolved]
  - Bone deformity [Recovering/Resolving]
  - Mucosal inflammation [Recovered/Resolved]
  - Diarrhoea [Recovered/Resolved]
  - Abdominal pain [Recovered/Resolved]
  - Nausea [Recovered/Resolved]
  - Candida infection [Recovered/Resolved]
  - Hypophagia [Recovered/Resolved]
  - Feeding intolerance [Recovered/Resolved]
  - Oral candidiasis [Recovered/Resolved]
  - Vitamin D deficiency [Unknown]
  - Product dose omission issue [Unknown]
  - Off label use [Unknown]

NARRATIVE: CASE EVENT DATE: 20240306
